FAERS Safety Report 24169505 (Version 2)
Quarter: 2024Q3

REPORT INFORMATION
  Report Type: Spontaneous
  Country: US (occurrence: US)
  Receive Date: 20240802
  Receipt Date: 20240828
  Transmission Date: 20241016
  Serious: Yes (Life-Threatening)
  Sender: BIOMARIN
  Company Number: US-BIOMARINAP-US-2024-159505

PATIENT

DRUGS (2)
  1. PALYNZIQ [Suspect]
     Active Substance: PEGVALIASE-PQPZ
     Indication: Phenylketonuria
     Dosage: 20 MILLIGRAM
     Route: 058
  2. PALYNZIQ [Suspect]
     Active Substance: PEGVALIASE-PQPZ
     Dosage: UNK
     Route: 065
     Dates: start: 20210107

REACTIONS (4)
  - May-Thurner syndrome [Recovered/Resolved]
  - Menstruation irregular [Recovered/Resolved]
  - Menometrorrhagia [Recovered/Resolved]
  - Menstrual clots [Recovered/Resolved]
